FAERS Safety Report 8927968 (Version 1)
Quarter: 2012Q4

REPORT INFORMATION
  Report Type: Spontaneous
  Country: US (occurrence: None)
  Receive Date: 20121121
  Receipt Date: 20121121
  Transmission Date: 20130627
  Serious: Yes (Life-Threatening, Hospitalization, Disabling)
  Sender: FDA-Public Use
  Company Number: None

PATIENT
  Age: 52 Year
  Sex: Male
  Weight: 110.22 kg

DRUGS (1)
  1. FINASTERIDE (PROSCAR) [Suspect]
     Indication: BPH
     Dates: start: 200601, end: 201209

REACTIONS (2)
  - Urinary tract obstruction [None]
  - Prostate cancer [None]
